FAERS Safety Report 13536162 (Version 3)
Quarter: 2017Q3

REPORT INFORMATION
  Report Type: Spontaneous
  Country: US (occurrence: US)
  Receive Date: 20170511
  Receipt Date: 20170824
  Transmission Date: 20171127
  Serious: Yes (Hospitalization, Other)
  Sender: FDA-Public Use
  Company Number: US-PFIZER INC-2017203487

PATIENT
  Age: 71 Year
  Sex: Female
  Weight: 90.72 kg

DRUGS (4)
  1. LYRICA [Suspect]
     Active Substance: PREGABALIN
     Indication: NEUROPATHY PERIPHERAL
     Dosage: 225 MG, DAILY (75MG ONE IN THE MORNING AND TWO AT BEDTIME)
     Route: 048
  2. LYRICA [Suspect]
     Active Substance: PREGABALIN
     Indication: CHRONIC INFLAMMATORY DEMYELINATING POLYRADICULONEUROPATHY
     Dosage: 225 MG, DAILY (75 MG- 6PM; 2-75 MG 10 PM)
  3. LYRICA [Suspect]
     Active Substance: PREGABALIN
     Indication: GUILLAIN-BARRE SYNDROME
  4. LYRICA [Suspect]
     Active Substance: PREGABALIN
     Indication: NEURALGIA
     Dosage: 50 MG, UNK
     Route: 048

REACTIONS (4)
  - Disease progression [Not Recovered/Not Resolved]
  - Guillain-Barre syndrome [Not Recovered/Not Resolved]
  - Drug ineffective [Unknown]
  - Hypoacusis [Unknown]

NARRATIVE: CASE EVENT DATE: 201409
